FAERS Safety Report 7520902-7 (Version None)
Quarter: 2011Q2

REPORT INFORMATION
  Report Type: 
  Country: None (occurrence: None)
  Receive Date: 20110603
  Receipt Date: 20101123
  Transmission Date: 20111010
  Serious: Yes (Hospitalization)
  Sender: FDA-Public Use
  Company Number: IT-BAYER-201045403GPV

PATIENT
  Age: 78 Year
  Sex: Female

DRUGS (3)
  1. LASIX [Suspect]
     Dosage: 25 MG (DAILY DOSE), , ORAL
     Route: 048
     Dates: start: 20100625, end: 20100725
  2. TELMISARTAN AND HYDROCHLOROTHIAZIDE [Concomitant]
     Dosage: 105 MG (DAILY DOSE), , ORAL
     Route: 048
  3. NEXAVAR [Suspect]
     Indication: HEPATIC NEOPLASM MALIGNANT NON-RESECTABLE
     Dosage: 400 MG (DAILY DOSE), , ORAL
     Route: 048
     Dates: start: 20100625, end: 20100725

REACTIONS (6)
  - COMA [None]
  - HYPONATRAEMIA [None]
  - VIITH NERVE PARALYSIS [None]
  - DRY SKIN [None]
  - MUCOSAL DRYNESS [None]
  - PYREXIA [None]
